FAERS Safety Report 6037674-8 (Version None)
Quarter: 2009Q1

REPORT INFORMATION
  Report Type: 
  Country: None (occurrence: None)
  Receive Date: 20090113
  Receipt Date: 20090106
  Transmission Date: 20090719
  Serious: Yes (Other)
  Sender: FDA-Public Use
  Company Number: APP200900010

PATIENT
  Age: 74 Year

DRUGS (2)
  1. SENSORCAINE [Suspect]
     Indication: DRUG USE FOR UNKNOWN INDICATION
     Dosage: IN COMBINATION WITH DEPO-MEDROL
  2. DEPO-MEDROL [Suspect]
     Indication: DRUG USE FOR UNKNOWN INDICATION
     Dosage: IN COMBINATION WITH SENSORCAINE

REACTIONS (2)
  - DYSPNOEA [None]
  - SWELLING [None]
